FAERS Safety Report 9241703 (Version 1)
Quarter: 2013Q2

REPORT INFORMATION
  Report Type: Report from Study
  Country: US (occurrence: US)
  Receive Date: 20130419
  Receipt Date: 20130419
  Transmission Date: 20140414
  Serious: Yes (Hospitalization, Other)
  Sender: FDA-Public Use
  Company Number: PHEH2013US008671

PATIENT
  Age: 80 Year
  Sex: Female

DRUGS (1)
  1. EXELON PATCH [Suspect]
     Indication: DEMENTIA ALZHEIMER^S TYPE
     Dosage: 4.6 MG, (PATCH 5 CM2) DAILY
     Route: 062
     Dates: start: 20130115

REACTIONS (3)
  - Aggression [Not Recovered/Not Resolved]
  - Verbal abuse [Not Recovered/Not Resolved]
  - Confusional state [Not Recovered/Not Resolved]
